FAERS Safety Report 8964424 (Version 1)
Quarter: 2012Q4

REPORT INFORMATION
  Report Type: 
  Country: US (occurrence: US)
  Receive Date: 20121214
  Receipt Date: 20121214
  Transmission Date: 20130627
  Serious: No
  Sender: FDA-Public Use
  Company Number: US-GLAXOSMITHKLINE-A0986978A

PATIENT
  Age: 75 Year
  Sex: Male

DRUGS (6)
  1. AVODART [Suspect]
     Indication: BENIGN PROSTATIC HYPERPLASIA
     Dosage: .5MG Per day
     Route: 048
  2. CRESTOR [Concomitant]
  3. ENABLEX [Concomitant]
  4. METOPROLOL [Concomitant]
  5. ISOSORBIDE [Concomitant]
  6. ASPIRIN [Concomitant]

REACTIONS (2)
  - Medication residue [Not Recovered/Not Resolved]
  - Product quality issue [Unknown]
